FAERS Safety Report 17769107 (Version 1)
Quarter: 2020Q2

REPORT INFORMATION
  Report Type: Spontaneous
  Country: US (occurrence: US)
  Receive Date: 20200512
  Receipt Date: 20200512
  Transmission Date: 20200714
  Serious: No
  Sender: FDA-Public Use
  Company Number: US-EMCURE PHARMACEUTICALS LTD-2020-EPL-000582

PATIENT

DRUGS (1)
  1. TETRACYCLINE HYDROCHLORIDE. [Suspect]
     Active Substance: TETRACYCLINE HYDROCHLORIDE
     Indication: GINGIVITIS
     Dosage: 250 MILLIGRAM ONE CAPSULE 4 TIMES A DAY

REACTIONS (4)
  - Oropharyngeal pain [Recovered/Resolved]
  - Throat irritation [Recovered/Resolved]
  - Chest pain [Not Recovered/Not Resolved]
  - Gastrointestinal pain [Recovered/Resolved]
